FAERS Safety Report 23161716 (Version 1)
Quarter: 2023Q4

REPORT INFORMATION
  Report Type: Spontaneous
  Country: NL (occurrence: NL)
  Receive Date: 20231108
  Receipt Date: 20231108
  Transmission Date: 20240109
  Serious: Yes (Death, Life-Threatening, Hospitalization)
  Sender: FDA-Public Use
  Company Number: None

PATIENT
  Age: 52 Year
  Sex: Female
  Weight: 79.5 kg

DRUGS (12)
  1. AMOXICILLIN [Suspect]
     Active Substance: AMOXICILLIN
     Indication: Helicobacter infection
     Dosage: 2DD 1000MG, AMOXICILLIN DISPERTABLET 1000MG / AMOXICILLIN DISP TEVA TABLET 1000MG, UNIT DOSE : 1000
     Dates: start: 20230830, end: 20230906
  2. PANTOPRAZOLE [Suspect]
     Active Substance: PANTOPRAZOLE
     Indication: Helicobacter infection
     Dosage: 2DD 40MG, PANTOPRAZOLE TABLET MSR 40MG / BRAND NAME NOT SPECIFIED, UNIT DOSE : 40 MG ; FREQUENCY TIM
     Dates: start: 20230830, end: 20230904
  3. CLARITHROMYCIN [Suspect]
     Active Substance: CLARITHROMYCIN
     Indication: Helicobacter infection
     Dosage: 2DD 500MG, CLARITROMYCIN 500MG / CLARITROMYCIN SANDOZ 500MG, UNIT DOSE : 500 MG, FREQUENCY TIME :12
     Dates: start: 20230830, end: 20230906
  4. SARIDON [Concomitant]
     Indication: Product used for unknown indication
     Dosage: PROPYPHENAZONE/PARACETAMOL/COFFEINE TAB 150/250/50MG / SARIDONE TABLET, THERAPY END DATE : NASK
     Dates: start: 20230904
  5. FLUTICASONE PROPIONATE [Concomitant]
     Active Substance: FLUTICASONE PROPIONATE
     Indication: Product used for unknown indication
     Dosage: FLUTICASON PROPIONATE NOSE SPRAY 50UG/DO / FLUTICASON PROPIONATE FC NOSE SPRAY 50MCG/DO FL 150DO, TH
     Route: 045
  6. ZOLMITRIPTAN GLENMARK [Concomitant]
     Indication: Product used for unknown indication
     Dosage: ZOLMITRIPTAN SMELTTABLET 2.5MG / ZOLMITRIPTAN GLENMARK ORODISP TABLET 2.5MG, THERAPY START DATE : NA
     Route: 048
  7. OMEPRAZOLE [Concomitant]
     Active Substance: OMEPRAZOLE
     Indication: Product used for unknown indication
     Dosage: 1 X 1 T, OMEPRAZOL CAPSULE MSR 20MG / OMEPRAZOL AURO CAPSULE MSR 20MG, DURATION : 2 DAYS
     Dates: start: 20230828, end: 20230830
  8. TRAMADOL HYDROCHLORIDE [Concomitant]
     Active Substance: TRAMADOL HYDROCHLORIDE
     Indication: Product used for unknown indication
     Dosage: 3 X 1 T ZN, TRAMADOL 50MG / TRAMADOL HCL CF 50MG, DURATION : 3 DAYS
     Dates: start: 20230903, end: 20230906
  9. RIZATRIPTAN [Concomitant]
     Active Substance: RIZATRIPTAN
     Indication: Product used for unknown indication
     Dosage: RIZATRIPTAN SMELTTABLET 10MG / RIZATRIPTAN AUROBINDO ORODISP TABLET 10MG, THERAPY START DATE : NASK,
     Route: 048
  10. IBUPROFEN AUROBINDO [Concomitant]
     Indication: Product used for unknown indication
     Dosage: IBUPROFEN 600MG / IBUPROFEN AUROBINDO TABLET FILM COVER 600MG, THERAPY START DATE : NASK; THERAPY EN
  11. ESOMEPRAZOLE [Concomitant]
     Active Substance: ESOMEPRAZOLE
     Indication: Product used for unknown indication
     Dosage: 2 X 2 T, ESOMEPRAZOL TABLET MSR 20MG / ESOMEPRAZOL SUN TABLET MSR 20MG, THERAPY END DATE : NASK
     Dates: start: 20230904
  12. AZITHROMYCIN [Concomitant]
     Active Substance: AZITHROMYCIN
     Indication: Product used for unknown indication
     Dosage: 1 X 1 T, AZITROMYCIN 500MG / AZITROMYCIN TEVA 500MG, DURATION : 3 DAYS
     Dates: start: 20230903, end: 20230906

REACTIONS (4)
  - Intestinal ischaemia [Fatal]
  - Ascites [Fatal]
  - Renal impairment [Fatal]
  - Pancreatitis necrotising [Fatal]
